FAERS Safety Report 17128774 (Version 1)
Quarter: 2019Q4

REPORT INFORMATION
  Report Type: Spontaneous
  Country: IE (occurrence: IE)
  Receive Date: 20191209
  Receipt Date: 20191209
  Transmission Date: 20200122
  Serious: Yes (Other)
  Sender: FDA-Public Use
  Company Number: IE-PFIZER INC-2019523889

PATIENT
  Age: 60 Year
  Sex: Male

DRUGS (7)
  1. BISOPROLOL [Suspect]
     Active Substance: BISOPROLOL
     Dosage: 2.5 MG, UNK
  2. ENTRESTO [Suspect]
     Active Substance: SACUBITRIL\VALSARTAN
     Dosage: 49/51 MG TWICE DAILY
  3. APIXABAN [Concomitant]
     Active Substance: APIXABAN
     Dosage: 5 MG, 2X/DAY
  4. EPLERENONE. [Suspect]
     Active Substance: EPLERENONE
     Dosage: 25 MG, UNK
  5. ENTRESTO [Suspect]
     Active Substance: SACUBITRIL\VALSARTAN
     Dosage: UNK
  6. EPLERENONE. [Suspect]
     Active Substance: EPLERENONE
     Dosage: 50 MG, UNK
  7. RAMIPRIL. [Suspect]
     Active Substance: RAMIPRIL
     Dosage: 7.5 MG, UNK

REACTIONS (13)
  - Amyloidosis [Unknown]
  - Cardiac failure [Unknown]
  - Weight increased [Not Recovered/Not Resolved]
  - Acute kidney injury [Unknown]
  - Chest discomfort [Unknown]
  - Nausea [Not Recovered/Not Resolved]
  - Liver function test abnormal [Unknown]
  - Atrial fibrillation [Unknown]
  - Fatigue [Unknown]
  - Fluid retention [Unknown]
  - Carpal tunnel syndrome [Unknown]
  - Dyspnoea exertional [Not Recovered/Not Resolved]
  - Abdominal distension [Not Recovered/Not Resolved]

NARRATIVE: CASE EVENT DATE: 201903
